FAERS Safety Report 14655593 (Version 2)
Quarter: 2018Q1

REPORT INFORMATION
  Report Type: Report from Study
  Country: DE (occurrence: DE)
  Receive Date: 20180319
  Receipt Date: 20180330
  Transmission Date: 20180509
  Serious: Yes (Other)
  Sender: FDA-Public Use
  Company Number: DE-TEVA-2018-DE-871852

PATIENT
  Sex: Male
  Weight: 97 kg

DRUGS (6)
  1. DEXAMETHASONE. [Concomitant]
     Active Substance: DEXAMETHASONE
     Indication: PREMEDICATION
     Dosage: LAST ADMINISTRATION BEFORE ONSET: 06-MAR-2017
     Route: 042
     Dates: start: 20161017
  2. MEDOXA [Suspect]
     Active Substance: OXALIPLATIN
     Indication: ADENOCARCINOMA OF COLON
     Dosage: LAST ADMINISTRATION BEFORE ONSET: 06-MAR-2017
     Route: 042
     Dates: start: 20161017, end: 20170403
  3. CALCIUM FOLINATE [Concomitant]
     Active Substance: LEUCOVORIN CALCIUM
     Indication: ADENOCARCINOMA OF COLON
     Dosage: LAST ADMINISTRATION BEFORE AE ONSET: 06-MAR-2017
     Route: 042
     Dates: start: 20161017
  4. FLUOROURACIL. [Suspect]
     Active Substance: FLUOROURACIL
     Indication: ADENOCARCINOMA OF COLON
     Dosage: LAST ADMINISTRATION BEFORE ONSET: 06-MAR-2017
     Route: 042
     Dates: start: 20161017
  5. PARACETAMOL [Concomitant]
     Active Substance: ACETAMINOPHEN
     Indication: PREMEDICATION
     Dosage: LAST ADMINISTRATION BEFORE ONSET: 06-MAR-2017
     Route: 048
     Dates: start: 20161017
  6. GRANISETRON [Concomitant]
     Active Substance: GRANISETRON
     Indication: PREMEDICATION
     Dosage: LAST ADMINISTRATION BEFORE ONSET: 06-MAR-2017
     Route: 042
     Dates: start: 20161017

REACTIONS (1)
  - Acute kidney injury [Not Recovered/Not Resolved]

NARRATIVE: CASE EVENT DATE: 20170307
